FAERS Safety Report 8688206 (Version 2)
Quarter: 2013Q1

REPORT INFORMATION
  Report Type: Spontaneous
  Country: US (occurrence: US)
  Receive Date: 20120727
  Receipt Date: 20130212
  Transmission Date: 20140127
  Serious: Yes (Hospitalization, Other)
  Sender: FDA-Public Use
  Company Number: US-009507513-1207USA010092

PATIENT
  Age: 74 Year
  Sex: Male

DRUGS (8)
  1. JANUVIA [Suspect]
     Route: 048
  2. XARELTO [Suspect]
     Route: 048
  3. AMARYL [Suspect]
     Route: 048
  4. AMIKACIN [Suspect]
     Route: 042
  5. ALLOPURINOL [Concomitant]
     Route: 048
  6. CARDIZEM CD [Concomitant]
     Route: 048
  7. LASIX (FUROSEMIDE SODIUM) [Concomitant]
     Route: 048
  8. AVODART [Concomitant]
     Route: 048

REACTIONS (5)
  - Hepatic enzyme increased [Unknown]
  - Haematuria [Unknown]
  - Renal failure [Unknown]
  - Hypoglycaemia [Unknown]
  - Hyperkalaemia [Unknown]
